FAERS Safety Report 24443130 (Version 1)
Quarter: 2024Q4

REPORT INFORMATION
  Report Type: Spontaneous
  Country: US (occurrence: US)
  Receive Date: 20241016
  Receipt Date: 20241016
  Transmission Date: 20250115
  Serious: No
  Sender: ELI LILLY AND COMPANY
  Company Number: US-ELI_LILLY_AND_COMPANY-US202410010081

PATIENT

DRUGS (2)
  1. CYMBALTA [Suspect]
     Active Substance: DULOXETINE HYDROCHLORIDE
     Indication: Product used for unknown indication
     Dosage: UNK, UNKNOWN
     Route: 065
  2. WELIREG [Concomitant]
     Active Substance: BELZUTIFAN
     Indication: Product used for unknown indication
     Dosage: UNK, UNKNOWN
     Route: 065

REACTIONS (8)
  - Pancreatic disorder [Unknown]
  - Blood glucose increased [Unknown]
  - Gait disturbance [Unknown]
  - Headache [Unknown]
  - Dry mouth [Unknown]
  - Hypersomnia [Unknown]
  - Asthenia [Unknown]
  - Hypoaesthesia [Unknown]
